FAERS Safety Report 9803565 (Version 1)
Quarter: 2014Q1

REPORT INFORMATION
  Report Type: Spontaneous
  Country: US (occurrence: None)
  Receive Date: 20140107
  Receipt Date: 20140107
  Transmission Date: 20141002
  Serious: Yes (Other)
  Sender: FDA-Public Use
  Company Number: None

PATIENT
  Age: 53 Year
  Sex: Female
  Weight: 105 kg

DRUGS (1)
  1. VANCOMYCIN 5G HOSPIRA [Suspect]
     Indication: CELLULITIS
     Route: 042
     Dates: start: 20131215

REACTIONS (4)
  - Rash [None]
  - Eosinophilia [None]
  - White blood cell count increased [None]
  - Body temperature increased [None]
